FAERS Safety Report 6914402-2 (Version None)
Quarter: 2010Q3

REPORT INFORMATION
  Report Type: 
  Country: None (occurrence: None)
  Receive Date: 20100805
  Receipt Date: 20100805
  Transmission Date: 20110219
  Serious: Yes (Other)
  Sender: FDA-Public Use
  Company Number: None

PATIENT
  Sex: Male
  Weight: 96.1626 kg

DRUGS (2)
  1. EXJADE [Suspect]
     Indication: MYELODYSPLASTIC SYNDROME
     Dosage: 1500MG DAILY PO
     Route: 048
     Dates: start: 20100702, end: 20100802
  2. REVLIMID [Suspect]
     Indication: MYELODYSPLASTIC SYNDROME
     Dosage: 150MG 2 TIMES WEEKLY PO
     Route: 048
     Dates: start: 20100102, end: 20100802

REACTIONS (4)
  - DECREASED APPETITE [None]
  - OEDEMA PERIPHERAL [None]
  - SPLENOMEGALY [None]
  - WEIGHT DECREASED [None]
